FAERS Safety Report 4557735-X (Version None)
Quarter: 2005Q1

REPORT INFORMATION
  Report Type: 
  Country: None (occurrence: None)
  Receive Date: 20050118
  Receipt Date: 20050110
  Transmission Date: 20050727
  Serious: No
  Sender: FDA-Public Use
  Company Number: 2005-124142-NL

PATIENT
  Sex: Female

DRUGS (5)
  1. MIRTAZAPINE [Suspect]
     Indication: DEPRESSION
     Dosage: 15 MG, ORAL
     Route: 048
     Dates: start: 20041214, end: 20041216
  2. VENLAFAXINE HCL [Concomitant]
  3. OLANZAPINE [Concomitant]
  4. ZOPICLONE [Concomitant]
  5. DIAZEPAM [Concomitant]

REACTIONS (3)
  - CONTUSION [None]
  - HYPERSENSITIVITY [None]
  - STOMATITIS [None]
